FAERS Safety Report 15774233 (Version 1)
Quarter: 2018Q4

REPORT INFORMATION
  Report Type: Spontaneous
  Country: US (occurrence: US)
  Receive Date: 20181229
  Receipt Date: 20181229
  Transmission Date: 20190205
  Serious: No
  Sender: FDA-Public Use
  Company Number: US-JNJFOC-20181140933

PATIENT
  Age: 79 Year
  Sex: Male
  Weight: 85.64 kg

DRUGS (2)
  1. ZYRTEC [Suspect]
     Active Substance: CETIRIZINE HYDROCHLORIDE
     Route: 048
  2. ZYRTEC [Suspect]
     Active Substance: CETIRIZINE HYDROCHLORIDE
     Indication: MULTIPLE ALLERGIES
     Route: 048
     Dates: start: 20181128

REACTIONS (6)
  - Psychomotor hyperactivity [Not Recovered/Not Resolved]
  - Loss of personal independence in daily activities [Recovering/Resolving]
  - Euphoric mood [Unknown]
  - Nervousness [Not Recovered/Not Resolved]
  - Chest pain [Recovered/Resolved]
  - Tremor [Recovering/Resolving]

NARRATIVE: CASE EVENT DATE: 20181129
